FAERS Safety Report 7414922-0 (Version None)
Quarter: 2011Q2

REPORT INFORMATION
  Report Type: 
  Country: None (occurrence: None)
  Receive Date: 20110414
  Receipt Date: 20110318
  Transmission Date: 20111010
  Serious: Yes (Other)
  Sender: FDA-Public Use
  Company Number: US-BAYER-201037875NA

PATIENT
  Age: 21 Year
  Sex: Female
  Weight: 56.689 kg

DRUGS (8)
  1. YAZ [Suspect]
     Indication: ORAL CONTRACEPTION
     Route: 048
     Dates: start: 20080101, end: 20080101
  2. YAZ [Suspect]
     Indication: ACNE
  3. ALEVE [Concomitant]
     Dosage: UNK UNK, QD
  4. YAZ [Suspect]
     Indication: PREMENSTRUAL SYNDROME
  5. YAZ [Suspect]
  6. VITAMINS [Concomitant]
  7. MOTRIN [Concomitant]
     Dosage: 600 MG, UNK
  8. IBUPROFEN [Concomitant]

REACTIONS (7)
  - CEREBROVASCULAR ACCIDENT [None]
  - GALLBLADDER DISORDER [None]
  - CHOLECYSTITIS CHRONIC [None]
  - ARRHYTHMIA [None]
  - ANHEDONIA [None]
  - DEEP VEIN THROMBOSIS [None]
  - PAIN [None]
